FAERS Safety Report 15022469 (Version 3)
Quarter: 2018Q3

REPORT INFORMATION
  Report Type: Report from Study
  Country: JP (occurrence: JP)
  Receive Date: 20180618
  Receipt Date: 20180815
  Transmission Date: 20181010
  Serious: Yes (Death, Life-Threatening)
  Sender: FDA-Public Use
  Company Number: JP-ACTELION-A-CH2018-173906

PATIENT
  Age: 74 Year
  Sex: Female

DRUGS (10)
  1. OPSUMIT [Suspect]
     Active Substance: MACITENTAN
     Indication: PULMONARY ARTERIAL HYPERTENSION
     Dosage: 10 MG, UNK
     Route: 048
     Dates: start: 20171215, end: 20180501
  2. PREDNISOLONE. [Concomitant]
     Active Substance: PREDNISOLONE
  3. DAIPHEN [Concomitant]
     Active Substance: SULFAMETHOXAZOLE\TRIMETHOPRIM
  4. REVATIO [Concomitant]
     Active Substance: SILDENAFIL CITRATE
  5. BERASUS [Concomitant]
     Active Substance: BERAPROST SODIUM
  6. BONALON [Concomitant]
     Active Substance: ALENDRONATE SODIUM
  7. CILNIDIPINE [Concomitant]
     Active Substance: CILNIDIPINE
  8. GLUCONSAN K [Concomitant]
     Active Substance: POTASSIUM GLUCONATE
  9. LANSOPRAZOLE. [Concomitant]
     Active Substance: LANSOPRAZOLE
  10. OXYGEN. [Concomitant]
     Active Substance: OXYGEN

REACTIONS (4)
  - General physical health deterioration [Fatal]
  - Ileus [Fatal]
  - Pyelonephritis [Fatal]
  - Systemic scleroderma [Fatal]

NARRATIVE: CASE EVENT DATE: 20180426
